FAERS Safety Report 10573753 (Version 1)
Quarter: 2014Q4

REPORT INFORMATION
  Report Type: Spontaneous
  Country: US (occurrence: US)
  Receive Date: 20141110
  Receipt Date: 20141110
  Transmission Date: 20150529
  Serious: No
  Sender: FDA-Public Use
  Company Number: US-GLAXOSMITHKLINE-US2014006751

PATIENT
  Sex: Female
  Weight: 70 kg

DRUGS (1)
  1. EQUATE NICOTINE [Suspect]
     Active Substance: NICOTINE
     Indication: SMOKING CESSATION THERAPY
     Dosage: 21 MG, UNK
     Route: 062
     Dates: start: 20140929, end: 20141004

REACTIONS (3)
  - Application site rash [Recovered/Resolved]
  - Alopecia [Recovered/Resolved]
  - Application site discolouration [Recovered/Resolved]
